FAERS Safety Report 7150433-8 (Version None)
Quarter: 2010Q4

REPORT INFORMATION
  Report Type: 
  Country: None (occurrence: None)
  Receive Date: 20101210
  Receipt Date: 20101201
  Transmission Date: 20110411
  Serious: Yes (Life-Threatening, Hospitalization, Disabling, Other)
  Sender: FDA-Public Use
  Company Number: PHHO2010HU08502

PATIENT
  Sex: Female
  Weight: 61.9 kg

DRUGS (25)
  1. FTY 720 FTY+ [Suspect]
     Indication: MULTIPLE SCLEROSIS
     Dosage: CODE NOT BROKEN
     Route: 048
     Dates: start: 20080605, end: 20100611
  2. VIREGYT-K [Concomitant]
     Indication: FATIGUE
     Dosage: UNK
     Dates: start: 20060621
  3. BACLOFEN [Concomitant]
     Indication: MUSCLE SPASTICITY
     Dosage: UNK
     Dates: start: 20100601
  4. AMANTADINE HYDROCHLORIDE [Concomitant]
  5. NEUROMULTIVIT [Concomitant]
     Indication: PARAPARESIS
     Dosage: UNK
     Dates: start: 20100531
  6. CALCIMUSC [Concomitant]
     Indication: PARAPARESIS
     Dosage: UNK
     Dates: start: 20100531
  7. QUAMATEL [Concomitant]
     Indication: ABDOMINAL PAIN UPPER
     Dosage: UNK
     Dates: start: 20100531
  8. NOOTROPIL [Concomitant]
  9. CLEXANE [Concomitant]
  10. APRANAX [Concomitant]
     Indication: PAIN
     Dosage: UNK
     Dates: start: 20100607
  11. RINGER [Concomitant]
  12. MEROPENEM [Concomitant]
  13. ISOPRINOSINE [Concomitant]
  14. ISODEX [Concomitant]
  15. BUPROPION HYDROCHLORIDE [Concomitant]
     Indication: DEPRESSION
  16. OXYBUTYNIN HYDROCHLORIDE [Concomitant]
     Indication: URINARY RETENTION
  17. PNEUMOCOCCAL VACCINE [Concomitant]
  18. A/H1N1 INFLUENZA PANDEMIC VACCINE [Concomitant]
  19. INFLUENZA VACCINE [Concomitant]
  20. AMOXICILLIN [Concomitant]
     Indication: PRODUCTIVE COUGH
  21. AMOXICILLIN [Concomitant]
     Indication: DYSPNOEA
  22. FLUTICASONE PROPIONATE [Concomitant]
     Indication: PRODUCTIVE COUGH
  23. FLUTICASONE PROPIONATE [Concomitant]
     Indication: DYSPNOEA
  24. SALBUTAMOL [Concomitant]
     Indication: PRODUCTIVE COUGH
  25. SALBUTAMOL [Concomitant]
     Indication: DYSPNOEA

REACTIONS (27)
  - APHASIA [None]
  - BLOOD CREATININE INCREASED [None]
  - CANDIDA SEPSIS [None]
  - CENTRAL NERVOUS SYSTEM LESION [None]
  - COGNITIVE DISORDER [None]
  - CRITICAL ILLNESS POLYNEUROPATHY [None]
  - CYSTITIS [None]
  - DECUBITUS ULCER [None]
  - DISORIENTATION [None]
  - DRUG INEFFECTIVE [None]
  - GAIT DISTURBANCE [None]
  - HYPOKINESIA [None]
  - IRON DEFICIENCY ANAEMIA [None]
  - LYMPHOPENIA [None]
  - MOTOR DYSFUNCTION [None]
  - MULTIPLE SCLEROSIS RELAPSE [None]
  - MUSCLE SPASTICITY [None]
  - MUSCULAR WEAKNESS [None]
  - POLYNEUROPATHY [None]
  - PYREXIA [None]
  - RENAL FAILURE [None]
  - SENSORY DISTURBANCE [None]
  - SOMNOLENCE [None]
  - SPASTIC PARAPLEGIA [None]
  - TOXIC ENCEPHALOPATHY [None]
  - URINARY TRACT INFECTION FUNGAL [None]
  - VISUAL IMPAIRMENT [None]
